FAERS Safety Report 9275497 (Version 1)
Quarter: 2012Q4

REPORT INFORMATION
  Report Type: Spontaneous
  Country: US (occurrence: None)
  Receive Date: 20121109
  Receipt Date: 20121109
  Transmission Date: 20130627
  Serious: Yes (Other)
  Sender: FDA-Public Use
  Company Number: 2011S1000920

PATIENT

DRUGS (2)
  1. CUBICIN [Suspect]
     Indication: INFECTION
     Dosage: U UNK ; UNK ; UNK
  2. ZOSYN [Suspect]
     Indication: INFECTION
     Dosage: U UNK ; UNK ; UNK

REACTIONS (1)
  - Neuralgia [None]
